FAERS Safety Report 21340498 (Version 1)
Quarter: 2022Q3

REPORT INFORMATION
  Report Type: Spontaneous
  Country: GB (occurrence: GB)
  Receive Date: 20220916
  Receipt Date: 20220916
  Transmission Date: 20221026
  Serious: Yes (Other)
  Sender: FDA-Public Use
  Company Number: GB-JNJFOC-20220850650

PATIENT
  Age: 33 Year
  Sex: Male
  Weight: 60 kg

DRUGS (3)
  1. ACYCLOVIR [Suspect]
     Active Substance: ACYCLOVIR
     Indication: Oral herpes
     Dosage: UNKNOWN
     Route: 065
     Dates: start: 20220805
  2. HYDROCORTISONE\MICONAZOLE NITRATE [Suspect]
     Active Substance: HYDROCORTISONE\MICONAZOLE NITRATE
     Indication: Tinea pedis
     Dosage: UNKNOWN
     Route: 065
     Dates: start: 20220805
  3. RISPERDAL [Suspect]
     Active Substance: RISPERIDONE
     Indication: Psychotic disorder
     Route: 065

REACTIONS (2)
  - Erectile dysfunction [Recovered/Resolved]
  - Acne [Not Recovered/Not Resolved]

NARRATIVE: CASE EVENT DATE: 20220812
